FAERS Safety Report 5815687-6 (Version None)
Quarter: 2008Q3

REPORT INFORMATION
  Report Type: 
  Country: None (occurrence: None)
  Receive Date: 20080716
  Receipt Date: 20080707
  Transmission Date: 20090109
  Serious: Yes (Other)
  Sender: FDA-Public Use
  Company Number: 2008017823

PATIENT
  Sex: Male

DRUGS (3)
  1. BENADRYL [Suspect]
     Dosage: 50 PILLS DAILY, ORAL
     Route: 048
  2. LEXAPRO [Concomitant]
  3. WELBUTRIN (BUPROPION HYDROCHLORIDE) [Concomitant]

REACTIONS (3)
  - EUPHORIC MOOD [None]
  - INCORRECT DOSE ADMINISTERED [None]
  - INTENTIONAL DRUG MISUSE [None]
